FAERS Safety Report 7296142-6 (Version None)
Quarter: 2011Q1

REPORT INFORMATION
  Report Type: 
  Country: None (occurrence: None)
  Receive Date: 20110211
  Receipt Date: 20110211
  Transmission Date: 20110831
  Serious: Yes (Other)
  Sender: FDA-Public Use
  Company Number: None

PATIENT
  Age: 71 Year
  Sex: Male
  Weight: 70.3075 kg

DRUGS (8)
  1. LEVAQUIN [Suspect]
     Indication: CELLULITIS
     Dosage: 500 MG ORAL
     Route: 048
     Dates: start: 20101006, end: 20101014
  2. PRAVASTATIN [Concomitant]
  3. MYFORTIC [Concomitant]
  4. CYCLOSPORIN MODIFIED [Concomitant]
  5. PREDNISONE [Concomitant]
  6. SERTRALINE [Concomitant]
  7. CARVIDOL [Concomitant]
  8. AMLOD-BENZAP [Concomitant]

REACTIONS (1)
  - TENDON DISORDER [None]
